FAERS Safety Report 14719343 (Version 1)
Quarter: 2018Q2

REPORT INFORMATION
  Report Type: Report from Study
  Country: DE (occurrence: DE)
  Receive Date: 20180405
  Receipt Date: 20180405
  Transmission Date: 20180711
  Serious: Yes (Life-Threatening, Hospitalization)
  Sender: FDA-Public Use
  Company Number: DE-ACCORD-065334

PATIENT
  Age: 75 Year
  Sex: Male
  Weight: 75 kg

DRUGS (21)
  1. GLANDOMED [Concomitant]
     Indication: PROPHYLAXIS
     Route: 061
     Dates: start: 20170901
  2. MAGNESIUM DIASPORAL [Concomitant]
     Active Substance: MAGNESIUM
     Indication: PROPHYLAXIS
     Dosage: 300 MILLIGRAM
     Route: 048
  3. INDAPAMIDE. [Concomitant]
     Active Substance: INDAPAMIDE
     Indication: HYPERTENSION
     Dosage: 1.5 MILLIGRAM
     Route: 048
  4. FOSTER SPRAY [Concomitant]
     Indication: PROPHYLAXIS
     Dosage: DOSE: 3
     Route: 055
  5. ZODIN [Concomitant]
     Indication: CORONARY ARTERY DISEASE
     Dosage: 1000 MILLIGRAM
     Route: 048
  6. BEPANTHEN (DEXPANTHENOL) [Concomitant]
     Active Substance: DEXPANTHENOL
     Indication: PROPHYLAXIS
     Route: 061
     Dates: start: 20170901
  7. LONQUEX [Concomitant]
     Active Substance: LIPEGFILGRASTIM
     Indication: PROPHYLAXIS
     Route: 058
     Dates: start: 20170812
  8. MARCUMAR [Concomitant]
     Active Substance: PHENPROCOUMON
     Indication: PROPHYLAXIS
     Dosage: DOSE: 1
     Route: 048
     Dates: start: 2010
  9. CARBOPLATIN. [Suspect]
     Active Substance: CARBOPLATIN
     Indication: NON-SMALL CELL LUNG CANCER
     Dosage: 5 MG/MIN/ML
     Route: 041
     Dates: start: 20170811, end: 20170901
  10. NEBIVOLOL. [Concomitant]
     Active Substance: NEBIVOLOL
     Indication: HYPERTENSION
     Dosage: 5 MILLIGRAM
     Route: 048
  11. RAMIPRIL. [Concomitant]
     Active Substance: RAMIPRIL
     Indication: HYPERTENSION
     Dosage: 10 MILLIGRAM
     Route: 048
  12. LERCANIDIPINE [Concomitant]
     Active Substance: LERCANIDIPINE
     Indication: HYPERTENSION
     Dosage: 10 MILLIGRAM
     Route: 048
  13. LIMPTAR [Concomitant]
     Active Substance: AMINOPHYLLINE\QUININE SULFATE
     Indication: PROPHYLAXIS
     Dosage: DOSE: 1
     Route: 048
  14. INNOHEP [Concomitant]
     Active Substance: TINZAPARIN SODIUM
     Indication: PROPHYLAXIS
     Dosage: DOSE: 1
     Route: 058
  15. NEURO STADA [Concomitant]
     Indication: PROPHYLAXIS
     Dosage: DOSE: 1
     Route: 048
  16. GINKGO BILOBA [Concomitant]
     Active Substance: GINKGO
     Indication: PROPHYLAXIS
     Dosage: 240 MILLIGRAM
     Route: 048
  17. PANTOPRAZOLE [Concomitant]
     Active Substance: PANTOPRAZOLE
     Indication: PROPHYLAXIS
     Dosage: 20 MILLIGRAM
     Route: 048
  18. PLAVIX [Concomitant]
     Active Substance: CLOPIDOGREL BISULFATE
     Indication: CEREBROVASCULAR ACCIDENT
     Dosage: 75 MILLIGRAM
     Route: 048
  19. ABRAXANE [Suspect]
     Active Substance: PACLITAXEL
     Indication: NON-SMALL CELL LUNG CANCER
     Dosage: 100 MILLIGRAM/SQ. METER
     Route: 041
     Dates: start: 20170811, end: 20170901
  20. ATORVASTATIN [Concomitant]
     Active Substance: ATORVASTATIN
     Indication: HYPERCHOLESTEROLAEMIA
     Dosage: 30 MILLIGRAM
     Route: 048
  21. ASPIRIN. [Concomitant]
     Active Substance: ASPIRIN
     Indication: PROPHYLAXIS
     Dosage: 100 MILLIGRAM
     Route: 048

REACTIONS (2)
  - Mucosal inflammation [Recovered/Resolved]
  - Sepsis [Recovered/Resolved]

NARRATIVE: CASE EVENT DATE: 20170825
